FAERS Safety Report 9632216 (Version 1)
Quarter: 2013Q4

REPORT INFORMATION
  Report Type: Other
  Country: GB (occurrence: GB)
  Receive Date: 20131018
  Receipt Date: 20131018
  Transmission Date: 20140711
  Serious: Yes (Life-Threatening, Other)
  Sender: FDA-Public Use
  Company Number: GB-VERTEX PHARMACEUTICALS INC-2013-010395

PATIENT
  Age: 44 Year
  Sex: Male

DRUGS (12)
  1. KALYDECO [Suspect]
     Indication: CYSTIC FIBROSIS
     Dosage: 150 MG, BID
     Route: 048
     Dates: start: 20130226
  2. IPRATROPIUM BROMIDE [Concomitant]
  3. AZITHROMYCIN [Concomitant]
  4. CALCICHEW D3 [Concomitant]
  5. MINOCYCLINE [Concomitant]
  6. OMEPRAZOLE [Concomitant]
  7. PANCREATIN [Concomitant]
  8. SALBUTAMOL [Concomitant]
  9. SODIUM VALPROATE [Concomitant]
  10. TOCOPHEROL [Concomitant]
  11. URSODEOXYCHOLIC ACID [Concomitant]
  12. MULTIVITAMIN [Concomitant]

REACTIONS (1)
  - Pneumothorax [Recovered/Resolved]
